FAERS Safety Report 6736167-X (Version None)
Quarter: 2010Q2

REPORT INFORMATION
  Report Type: 
  Country: None (occurrence: None)
  Receive Date: 20100521
  Receipt Date: 20100514
  Transmission Date: 20101027
  Serious: Yes (Other)
  Sender: FDA-Public Use
  Company Number: US-JNJFOC-20100506289

PATIENT
  Age: 10 Month
  Sex: Female
  Weight: 9.98 kg

DRUGS (8)
  1. CONCENTRATED MOTRIN INFANTS' [Suspect]
     Route: 048
  2. CONCENTRATED MOTRIN INFANTS' [Suspect]
     Indication: PYREXIA
     Route: 048
  3. CHILDREN'S MOTRIN [Suspect]
     Route: 048
  4. CHILDREN'S MOTRIN [Suspect]
     Indication: PYREXIA
     Route: 048
  5. CHILDREN'S TYLENOL [Suspect]
     Route: 048
  6. CHILDREN'S TYLENOL [Suspect]
     Indication: PYREXIA
     Route: 048
  7. CHILDREN'S TYLENOL LIQUID BUBBLEGUM [Suspect]
     Route: 048
  8. CHILDREN'S TYLENOL LIQUID BUBBLEGUM [Suspect]
     Indication: PYREXIA
     Route: 048

REACTIONS (7)
  - CONVULSION [None]
  - DRUG INEFFECTIVE [None]
  - EAR INFECTION [None]
  - PRODUCT QUALITY ISSUE [None]
  - PYREXIA [None]
  - ROSEOLA [None]
  - VOMITING [None]
